FAERS Safety Report 9732077 (Version 1)
Quarter: 2013Q4

REPORT INFORMATION
  Report Type: Report from Study
  Country: FR (occurrence: FR)
  Receive Date: 20131205
  Receipt Date: 20131205
  Transmission Date: 20140711
  Serious: Yes (Other)
  Sender: FDA-Public Use
  Company Number: FR-UCBSA-104399

PATIENT
  Age: 38 Year
  Sex: Male
  Weight: 72 kg

DRUGS (6)
  1. CIMZIA [Suspect]
     Indication: RHEUMATOID ARTHRITIS
     Dosage: 200 MG
     Route: 058
     Dates: start: 20130726, end: 20131115
  2. METHOTREXATE [Concomitant]
     Indication: RHEUMATOID ARTHRITIS
     Dates: start: 201306
  3. IXPRIM [Concomitant]
     Indication: RHEUMATOID ARTHRITIS
     Dates: start: 2013
  4. CYMBALTA [Concomitant]
     Indication: DEPRESSION
     Dates: start: 201309
  5. ZOPICLONE [Concomitant]
     Indication: INSOMNIA
     Dates: start: 201306
  6. SPECIAFOLDINE [Concomitant]
     Indication: PROPHYLAXIS
     Dates: start: 201306

REACTIONS (5)
  - Panic attack [Recovered/Resolved]
  - Rash [Recovered/Resolved]
  - Nausea [Recovered/Resolved]
  - Migraine [Recovered/Resolved]
  - Hot flush [Recovered/Resolved]
